FAERS Safety Report 8277633-8 (Version None)
Quarter: 2012Q2

REPORT INFORMATION
  Report Type: 
  Country: None (occurrence: None)
  Receive Date: 20120412
  Receipt Date: 20120403
  Transmission Date: 20120825
  Serious: Yes (Other)
  Sender: FDA-Public Use
  Company Number: US-ASTRAZENECA-2011SE74370

PATIENT
  Age: 84 Year
  Sex: Female

DRUGS (9)
  1. PROAIR HFA [Concomitant]
  2. ALBUTEROL [Concomitant]
  3. PULMICORT [Suspect]
     Route: 055
  4. DIOVAN HCT [Concomitant]
  5. NEXIUM [Suspect]
     Route: 048
  6. PREDNISONE TAB [Suspect]
     Route: 065
  7. SINGULAIR [Concomitant]
  8. ZOCOR [Concomitant]
  9. ADVAIR DISKUS 100/50 [Concomitant]

REACTIONS (8)
  - LUNG NEOPLASM MALIGNANT [None]
  - ASTHENIA [None]
  - NEOPLASM MALIGNANT [None]
  - SARCOMA [None]
  - BRONCHITIS [None]
  - SLEEP DISORDER DUE TO GENERAL MEDICAL CONDITION, INSOMNIA TYPE [None]
  - FEELING JITTERY [None]
  - DEPRESSED MOOD [None]
